FAERS Safety Report 6933768-0 (Version None)
Quarter: 2010Q3

REPORT INFORMATION
  Report Type: 
  Country: None (occurrence: None)
  Receive Date: 20100820
  Receipt Date: 20100810
  Transmission Date: 20110219
  Serious: Yes (Hospitalization, Other)
  Sender: FDA-Public Use
  Company Number: US-PFIZER INC-2005072795

PATIENT
  Sex: Female
  Weight: 63.5 kg

DRUGS (11)
  1. BEXTRA [Suspect]
     Indication: ARTHRALGIA
     Dosage: 20 MG, 1X/DAY
     Route: 048
     Dates: start: 20030101
  2. CELEBREX [Suspect]
     Dosage: UNK
  3. IBUPROFEN [Suspect]
     Indication: ARTHRALGIA
     Dosage: 800 MG, 3X/DAY
     Route: 048
     Dates: start: 20050101, end: 20050101
  4. THYROID TAB [Concomitant]
     Indication: HYPOTHYROIDISM
     Route: 048
     Dates: start: 19630101
  5. ALLEGRA [Concomitant]
     Route: 048
  6. DYAZIDE [Concomitant]
     Indication: HYPERTENSION
     Route: 048
     Dates: start: 20030101
  7. VASOTEC [Concomitant]
     Indication: HYPERTENSION
     Route: 048
     Dates: start: 20030101
  8. WARFARIN [Concomitant]
     Indication: THROMBOSIS
     Route: 048
  9. VITAMIN E [Concomitant]
     Route: 048
  10. ASCORBIC ACID [Concomitant]
     Route: 048
  11. MULTI-VITAMINS [Concomitant]
     Route: 048

REACTIONS (4)
  - ARTHRALGIA [None]
  - DRUG INEFFECTIVE [None]
  - NEOPLASM [None]
  - UTERINE PROLAPSE REPAIR [None]
